FAERS Safety Report 9815711 (Version 3)
Quarter: 2014Q1

REPORT INFORMATION
  Report Type: Spontaneous
  Country: JP (occurrence: JP)
  Receive Date: 20140114
  Receipt Date: 20140205
  Transmission Date: 20141002
  Serious: Yes (Hospitalization)
  Sender: FDA-Public Use
  Company Number: JP-B.I. PHARMACEUTICALS,INC./RIDGEFIELD-2014-BI-01429GD

PATIENT
  Age: 53 Year
  Sex: Female

DRUGS (2)
  1. MICARDIS [Suspect]
     Indication: HYPERTENSION
     Dosage: 40 MG
     Route: 065
  2. AZELNIDIPINE [Suspect]
     Indication: HYPERTENSION
     Dosage: 16 MG
     Route: 065

REACTIONS (5)
  - Primary hyperaldosteronism [Unknown]
  - Adrenal adenoma [Unknown]
  - Hypokalaemia [Unknown]
  - Hyperkaliuria [Unknown]
  - Metabolic alkalosis [Unknown]
